FAERS Safety Report 4452360-3 (Version None)
Quarter: 2004Q3

REPORT INFORMATION
  Report Type: 
  Country: None (occurrence: None)
  Receive Date: 20040916
  Receipt Date: 20040903
  Transmission Date: 20050211
  Serious: Yes (Hospitalization)
  Sender: FDA-Public Use
  Company Number: JP-2004-028057

PATIENT
  Age: 37 Year
  Sex: Female

DRUGS (6)
  1. BETAFERON (INTERFERON BETA - 1B) INJECTION, 250UG [Suspect]
     Indication: MULTIPLE SCLEROSIS
     Dosage: 9.6 MIU, EVERY 2D, SUBCUTANEOUS; 9.6 MIU, 2X/WEEK, SUBCUTANEOUS
     Route: 058
     Dates: start: 20031113, end: 20040630
  2. BETAFERON (INTERFERON BETA - 1B) INJECTION, 250UG [Suspect]
     Indication: MULTIPLE SCLEROSIS
     Dosage: 9.6 MIU, EVERY 2D, SUBCUTANEOUS; 9.6 MIU, 2X/WEEK, SUBCUTANEOUS
     Route: 058
     Dates: start: 20040701, end: 20040801
  3. METHYCOBAL (MECOBALAMIN) TABLET [Concomitant]
  4. JUVELA NICOTINATE CAPSULE [Concomitant]
  5. BAYASPIRIN (ACETYLSALICYLIC ACID) TABLET [Concomitant]
  6. DANTRUM (DANTROLENE SODIUM) CAPSULE [Concomitant]

REACTIONS (6)
  - ERYTHEMA [None]
  - INJECTION SITE NECROSIS [None]
  - INJECTION SITE ULCER [None]
  - PLATELET COUNT DECREASED [None]
  - SKIN NECROSIS [None]
  - WHITE BLOOD CELL COUNT DECREASED [None]
